FAERS Safety Report 15699938 (Version 1)
Quarter: 2018Q4

REPORT INFORMATION
  Report Type: Spontaneous
  Country: US (occurrence: US)
  Receive Date: 20181207
  Receipt Date: 20181207
  Transmission Date: 20190205
  Serious: No
  Sender: FDA-Public Use
  Company Number: US-009507513-1811USA011190

PATIENT
  Sex: Male

DRUGS (1)
  1. TEMODAR [Suspect]
     Active Substance: TEMOZOLOMIDE
     Dosage: 2 DOSAGE FORM, BID (100 MG AT TWO CAPSULES TWICE A DAY)
     Route: 048

REACTIONS (2)
  - Abdominal pain [Unknown]
  - Constipation [Unknown]
